FAERS Safety Report 5614876-3 (Version None)
Quarter: 2008Q1

REPORT INFORMATION
  Report Type: 
  Country: None (occurrence: None)
  Receive Date: 20080131
  Receipt Date: 20080125
  Transmission Date: 20080703
  Serious: Yes (Hospitalization)
  Sender: FDA-Public Use
  Company Number: DE-GUERBET-20080005

PATIENT
  Age: 16 Month
  Sex: Male
  Weight: 10 kg

DRUGS (1)
  1. DOTAREM: 07GD038A / GADOTERIC ACID [Suspect]
     Indication: COMPUTERISED TOMOGRAM HEAD
     Dosage: 16, ML MILLILITRE(S), 1, 1, TOTAL; INTRAVENOUS (NOT OTHERWISE SPECIFIED)
     Route: 042
     Dates: start: 20080117, end: 20080117

REACTIONS (1)
  - ACCIDENTAL OVERDOSE [None]
